FAERS Safety Report 7711832-6 (Version None)
Quarter: 2011Q3

REPORT INFORMATION
  Report Type: 
  Country: None (occurrence: None)
  Receive Date: 20110826
  Receipt Date: 20110728
  Transmission Date: 20111222
  Serious: Yes (Other)
  Sender: FDA-Public Use
  Company Number: SE-AMGEN-SWESP2011023529

PATIENT
  Age: 69 Year
  Sex: Female
  Weight: 74 kg

DRUGS (6)
  1. MELOXICAM [Concomitant]
     Route: 048
  2. AMLODIPINE BESYLATE [Concomitant]
     Route: 048
  3. PROLIA [Suspect]
     Indication: OSTEOPOROSIS POSTMENOPAUSAL
     Dosage: 60 MG, UNK
     Route: 058
     Dates: start: 20110317
  4. VAGIFEM [Concomitant]
     Route: 067
  5. CITALOPRAM HYDROBROMIDE [Concomitant]
     Route: 048
  6. OMEPRAZOLE [Concomitant]
     Route: 048

REACTIONS (7)
  - TONGUE DISORDER [None]
  - COLONIC STENOSIS [None]
  - DIARRHOEA [None]
  - CONSTIPATION [None]
  - DIVERTICULUM [None]
  - PRURITUS [None]
  - VOMITING [None]
